FAERS Safety Report 12188685 (Version 1)
Quarter: 2016Q1

REPORT INFORMATION
  Report Type: Spontaneous
  Country: MT (occurrence: MT)
  Receive Date: 20160317
  Receipt Date: 20160317
  Transmission Date: 20160526
  Serious: Yes (Other)
  Sender: FDA-Public Use
  Company Number: MT-WATSON-2016-01907

PATIENT
  Sex: Male

DRUGS (1)
  1. DOMIDE [Suspect]
     Active Substance: DORZOLAMIDE
     Indication: GLAUCOMA
     Dosage: UNK UNK, UNKNOWN
     Route: 047
     Dates: start: 201407, end: 201411

REACTIONS (2)
  - Sensation of foreign body [Recovered/Resolved]
  - Conjunctivitis [Recovered/Resolved]
